FAERS Safety Report 21195826 (Version 3)
Quarter: 2022Q4

REPORT INFORMATION
  Report Type: Spontaneous
  Country: US (occurrence: US)
  Receive Date: 20220810
  Receipt Date: 20221011
  Transmission Date: 20230113
  Serious: Yes (Hospitalization, Other)
  Sender: FDA-Public Use
  Company Number: US-BRISTOL-MYERS SQUIBB COMPANY-2022-085908

PATIENT
  Age: 78 Year
  Sex: Female

DRUGS (1)
  1. REVLIMID [Suspect]
     Active Substance: LENALIDOMIDE
     Indication: Plasma cell myeloma
     Dosage: TAKE 1 CAPSULE BY MOUTH EVERY DAY FOR 21 DAYS ON THEN 7 DAYS OFF. REPEAT EVERY 28 DAYS
     Route: 048

REACTIONS (6)
  - Neuropathy peripheral [Unknown]
  - Burning sensation [Unknown]
  - Dyspnoea [Unknown]
  - Back pain [Unknown]
  - Irritability [Unknown]
  - Gout [Unknown]
